FAERS Safety Report 9231006 (Version 1)
Quarter: 2013Q2

REPORT INFORMATION
  Report Type: Report from Study
  Country: US (occurrence: US)
  Receive Date: 20130415
  Receipt Date: 20130415
  Transmission Date: 20140414
  Serious: Yes (Hospitalization, Other)
  Sender: FDA-Public Use
  Company Number: US-ROCHE-1213239

PATIENT
  Sex: Male

DRUGS (8)
  1. PEG-INTERFERON ALFA 2A [Suspect]
     Indication: HEPATITIS C
     Route: 058
     Dates: start: 20130308
  2. PEG-INTERFERON ALFA 2A [Suspect]
     Route: 058
     Dates: start: 20121204
  3. RIBAVIRIN [Suspect]
     Indication: HEPATITIS C
     Route: 048
     Dates: start: 20121204
  4. RIBAVIRIN [Suspect]
     Route: 048
     Dates: start: 20130308
  5. INCIVEK [Suspect]
     Indication: HEPATITIS C
     Route: 048
     Dates: start: 20121204
  6. INCIVEK [Suspect]
     Route: 048
     Dates: start: 20130308
  7. FLEXERIL [Concomitant]
     Indication: MUSCLE RELAXANT THERAPY
     Route: 048
  8. NEURONTIN [Concomitant]
     Indication: NEURALGIA
     Route: 048

REACTIONS (7)
  - Red blood cell count decreased [Recovered/Resolved]
  - White blood cell count decreased [Unknown]
  - Dizziness [Recovered/Resolved]
  - Dyspnoea [Recovered/Resolved]
  - Chills [Recovered/Resolved]
  - Fatigue [Recovered/Resolved]
  - Gait disturbance [Not Recovered/Not Resolved]
